FAERS Safety Report 9194434 (Version 1)
Quarter: 2013Q1

REPORT INFORMATION
  Report Type: Report from Study
  Country: GB (occurrence: GB)
  Receive Date: 20130327
  Receipt Date: 20130327
  Transmission Date: 20140127
  Serious: Yes (Congenital Anomaly, Other)
  Sender: FDA-Public Use
  Company Number: GB-PFIZER INC-2013097508

PATIENT
  Sex: Female

DRUGS (3)
  1. LEVETIRACETAM [Suspect]
     Indication: EPILEPSY
     Dosage: 2000 MG, 1X/DAY
     Route: 064
  2. LAMOTRIGINE [Suspect]
     Indication: EPILEPSY
     Dosage: 450 MG, 1X/DAY
     Route: 064
  3. PHENYTOIN [Suspect]
     Indication: EPILEPSY
     Dosage: 300 MG, 1X/DAY
     Route: 064

REACTIONS (4)
  - Maternal exposure during pregnancy [Unknown]
  - Dysmorphism [Unknown]
  - Benign congenital hypotonia [Unknown]
  - Congenital urethral anomaly [Unknown]
